FAERS Safety Report 9631254 (Version 1)
Quarter: 2013Q4

REPORT INFORMATION
  Report Type: Spontaneous
  Country: US (occurrence: US)
  Receive Date: 20131018
  Receipt Date: 20131018
  Transmission Date: 20140711
  Serious: Yes (Death, Other)
  Sender: FDA-Public Use
  Company Number: US-SA-2013SA101137

PATIENT
  Sex: 0

DRUGS (1)
  1. AMBIEN [Suspect]
     Route: 065

REACTIONS (4)
  - Death [Fatal]
  - Accident [Unknown]
  - Limb injury [Unknown]
  - Adverse event [Unknown]
